FAERS Safety Report 6419556-2 (Version None)
Quarter: 2009Q4

REPORT INFORMATION
  Report Type: 
  Country: None (occurrence: None)
  Receive Date: 20091027
  Receipt Date: 20091013
  Transmission Date: 20100525
  Serious: Yes (Hospitalization)
  Sender: FDA-Public Use
  Company Number: DSA_41829_2009

PATIENT
  Age: 53 Year
  Sex: Male

DRUGS (3)
  1. VASOTEC               (VASOTEC-ENALAPRIL MAELATE) (NOT SPECIFIED) [Suspect]
     Indication: DRUG USE FOR UNKNOWN INDICATION
     Dosage: 20 MG QD ORAL, 10 MG QD ORAL, 20 MG QD ORAL
     Route: 048
     Dates: end: 20090601
  2. VASOTEC               (VASOTEC-ENALAPRIL MAELATE) (NOT SPECIFIED) [Suspect]
     Indication: DRUG USE FOR UNKNOWN INDICATION
     Dosage: 20 MG QD ORAL, 10 MG QD ORAL, 20 MG QD ORAL
     Route: 048
     Dates: start: 20090601, end: 20090922
  3. VASOTEC               (VASOTEC-ENALAPRIL MAELATE) (NOT SPECIFIED) [Suspect]
     Indication: DRUG USE FOR UNKNOWN INDICATION
     Dosage: 20 MG QD ORAL, 10 MG QD ORAL, 20 MG QD ORAL
     Route: 048
     Dates: start: 20090923, end: 20090923

REACTIONS (6)
  - ASTHENIA [None]
  - DRUG ADMINISTRATION ERROR [None]
  - HYPERHIDROSIS [None]
  - HYPOTENSION [None]
  - PARAESTHESIA [None]
  - PRESYNCOPE [None]
